FAERS Safety Report 4522531-6 (Version None)
Quarter: 2004Q4

REPORT INFORMATION
  Report Type: 
  Country: None (occurrence: None)
  Receive Date: 20041207
  Receipt Date: 20041122
  Transmission Date: 20050328
  Serious: No
  Sender: FDA-Public Use
  Company Number: 2004GB02815

PATIENT
  Age: 52 Year
  Sex: Male
  Weight: 89.2 kg

DRUGS (3)
  1. CRESTOR [Suspect]
     Indication: BLOOD CHOLESTEROL INCREASED
     Dosage: 10 MG QD PO
     Route: 048
     Dates: start: 20040601, end: 20040701
  2. PHENYTOIN [Concomitant]
  3. EZETROL [Concomitant]

REACTIONS (1)
  - ERECTILE DYSFUNCTION [None]
